FAERS Safety Report 10979749 (Version 1)
Quarter: 2015Q2

REPORT INFORMATION
  Report Type: Spontaneous
  Country: US (occurrence: US)
  Receive Date: 20150402
  Receipt Date: 20150402
  Transmission Date: 20150821
  Serious: No
  Sender: FDA-Public Use
  Company Number: US-SA-2014SA139044

PATIENT
  Age: 12 Year
  Sex: Male
  Weight: 118.84 kg

DRUGS (1)
  1. ALLEGRA [Suspect]
     Active Substance: FEXOFENADINE HYDROCHLORIDE
     Indication: HYPERSENSITIVITY
     Dosage: DOSE:3 TEASPOON(S)
     Route: 048
     Dates: start: 20141006

REACTIONS (1)
  - Drug ineffective [Unknown]
